FAERS Safety Report 17985627 (Version 3)
Quarter: 2022Q1

REPORT INFORMATION
  Report Type: Spontaneous
  Country: CH (occurrence: CH)
  Receive Date: 20200706
  Receipt Date: 20220328
  Transmission Date: 20220423
  Serious: Yes (Death, Other)
  Sender: FDA-Public Use
  Company Number: CH-009507513-2007CHE001535

PATIENT
  Age: 71 Year
  Sex: Female

DRUGS (6)
  1. PEMBROLIZUMAB [Suspect]
     Active Substance: PEMBROLIZUMAB
     Indication: Malignant neoplasm progression
     Dosage: 200MG 1X/3 WEEKS
     Route: 041
     Dates: start: 201910, end: 202009
  2. AXITINIB [Suspect]
     Active Substance: AXITINIB
     Indication: Malignant neoplasm progression
     Dosage: 5MG 2X/D
     Dates: start: 201910
  3. AXITINIB [Suspect]
     Active Substance: AXITINIB
     Dosage: 5MG/D
  4. CABOZANTINIB [Suspect]
     Active Substance: CABOZANTINIB
     Indication: Malignant neoplasm progression
  5. NIVOLUMAB [Suspect]
     Active Substance: NIVOLUMAB
  6. IPILIMUMAB [Suspect]
     Active Substance: IPILIMUMAB

REACTIONS (11)
  - Malignant neoplasm progression [Fatal]
  - Hepatotoxicity [Recovered/Resolved]
  - Malignant neoplasm progression [Unknown]
  - Ototoxicity [Unknown]
  - Acute kidney injury [Unknown]
  - Arthralgia [Recovered/Resolved]
  - Lip swelling [Recovered/Resolved]
  - Asthenia [Recovered/Resolved]
  - Drug eruption [Recovered/Resolved]
  - Toxicity to various agents [Unknown]
  - Drug eruption [Unknown]

NARRATIVE: CASE EVENT DATE: 20190101
